FAERS Safety Report 12996131 (Version 1)
Quarter: 2016Q4

REPORT INFORMATION
  Report Type: Spontaneous
  Country: BR (occurrence: BR)
  Receive Date: 20161202
  Receipt Date: 20161202
  Transmission Date: 20170207
  Serious: Yes (Other)
  Sender: FDA-Public Use
  Company Number: BR-AMGEN-BRASP2016169758

PATIENT
  Age: 56 Year
  Sex: Male

DRUGS (1)
  1. ENBREL [Suspect]
     Active Substance: ETANERCEPT
     Indication: PRODUCT USED FOR UNKNOWN INDICATION
     Dosage: UNK
     Route: 065
     Dates: start: 20161011

REACTIONS (4)
  - Arthralgia [Unknown]
  - Vocal cord polyp [Unknown]
  - Joint effusion [Unknown]
  - Oropharyngeal blistering [Unknown]

NARRATIVE: CASE EVENT DATE: 20161102
